FAERS Safety Report 12088521 (Version 1)
Quarter: 2016Q1

REPORT INFORMATION
  Report Type: Spontaneous
  Country: None (occurrence: None)
  Receive Date: 20160216
  Receipt Date: 20160216
  Transmission Date: 20160526
  Serious: No
  Sender: FDA-Public Use
  Company Number: None

PATIENT
  Age: 32 Year
  Sex: Female
  Weight: 46.72 kg

DRUGS (2)
  1. CYCLOBENZAPRINE [Suspect]
     Active Substance: CYCLOBENZAPRINE
     Indication: PIRIFORMIS SYNDROME
     Dosage: 1-2 DF THREE TIMES DAILY TAKEN BY MOUTH
     Route: 048
     Dates: start: 20160202, end: 20160206
  2. BIRTH CONTROL PILL [Concomitant]
     Active Substance: UNSPECIFIED INGREDIENT

REACTIONS (7)
  - Skin warm [None]
  - Syncope [None]
  - Dry mouth [None]
  - Tinnitus [None]
  - Flushing [None]
  - Heart rate increased [None]
  - Palpitations [None]

NARRATIVE: CASE EVENT DATE: 20160206
